FAERS Safety Report 5423083-9 (Version None)
Quarter: 2007Q3

REPORT INFORMATION
  Report Type: 
  Country: None (occurrence: None)
  Receive Date: 20070821
  Receipt Date: 20070810
  Transmission Date: 20080115
  Serious: Yes (Other)
  Sender: FDA-Public Use
  Company Number: JPI-P-001865

PATIENT
  Age: 54 Year
  Sex: Female
  Weight: 65.7716 kg

DRUGS (7)
  1. XYREM [Suspect]
     Indication: SLEEP DISORDER
     Dosage: ORAL;  (3 GM, ONCE OR TWICE NIGHTLY), ORAL
     Route: 048
     Dates: start: 20050101
  2. TRAZODONE HCL [Concomitant]
  3. BUPROPION HCL (BUPROPION HYDROCHLORIDE) [Concomitant]
  4. THYROID SUPPLEMENT (THYROID PREPARATIONS) [Concomitant]
  5. PROGESTERONE [Concomitant]
  6. ESTRADIOL VAGINAL RING (ESTRADIOL) [Concomitant]
  7. TESTOSTERONE CREAM (TESTOSTERONE) [Concomitant]

REACTIONS (4)
  - ARTHRALGIA [None]
  - MUSCLE ATROPHY [None]
  - MUSCULAR WEAKNESS [None]
  - MYOSITIS [None]
